FAERS Safety Report 21943539 (Version 12)
Quarter: 2025Q2

REPORT INFORMATION
  Report Type: Report from Study
  Country: US (occurrence: US)
  Receive Date: 20230202
  Receipt Date: 20250522
  Transmission Date: 20250716
  Serious: Yes (Hospitalization, Other)
  Sender: TAKEDA
  Company Number: US-TAKEDA-2021TUS056527

PATIENT
  Age: 39 Year
  Sex: Male
  Weight: 101 kg

DRUGS (34)
  1. HUMAN IMMUNOGLOBULIN G [Suspect]
     Active Substance: HUMAN IMMUNOGLOBULIN G
     Indication: IgG deficiency
     Dosage: 15 GRAM, 1/WEEK
     Dates: start: 20210604
  2. HUMAN IMMUNOGLOBULIN G [Suspect]
     Active Substance: HUMAN IMMUNOGLOBULIN G
     Dosage: 10 GRAM, 1/WEEK
  3. HUMAN IMMUNOGLOBULIN G [Suspect]
     Active Substance: HUMAN IMMUNOGLOBULIN G
     Dosage: 10 GRAM, Q2WEEKS
  4. HUMAN IMMUNOGLOBULIN G [Suspect]
     Active Substance: HUMAN IMMUNOGLOBULIN G
     Dosage: 10 GRAM, 2/WEEK
  5. HUMAN IMMUNOGLOBULIN G [Suspect]
     Active Substance: HUMAN IMMUNOGLOBULIN G
     Dosage: 15 GRAM, 1/WEEK
  6. ACETAMINOPHEN [Concomitant]
     Active Substance: ACETAMINOPHEN
  7. EPINEPHRINE [Concomitant]
     Active Substance: EPINEPHRINE
  8. FLUTICASONE PROPIONATE [Concomitant]
     Active Substance: FLUTICASONE PROPIONATE
  9. TERBINAFINE [Concomitant]
     Active Substance: TERBINAFINE
  10. MIRTAZAPINE [Concomitant]
     Active Substance: MIRTAZAPINE
  11. COENZYME Q10 [Concomitant]
     Active Substance: DIETARY SUPPLEMENT\UBIDECARENONE
  12. ZINC [Concomitant]
     Active Substance: ZINC
  13. LIPITOR [Concomitant]
     Active Substance: ATORVASTATIN CALCIUM
  14. LEVOTHYROXINE SODIUM [Concomitant]
     Active Substance: LEVOTHYROXINE SODIUM
  15. MELATONIN [Concomitant]
     Active Substance: MELATONIN
  16. KETOCONAZOLE [Concomitant]
     Active Substance: KETOCONAZOLE
  17. LORAZEPAM [Concomitant]
     Active Substance: LORAZEPAM
  18. HYDROCORTISONE [Concomitant]
     Active Substance: HYDROCORTISONE
  19. SOLU-CORTEF [Concomitant]
     Active Substance: HYDROCORTISONE SODIUM SUCCINATE
  20. LIDOCAINE [Concomitant]
     Active Substance: LIDOCAINE
  21. GABAPENTIN [Concomitant]
     Active Substance: GABAPENTIN
  22. OXCARBAZEPINE [Concomitant]
     Active Substance: OXCARBAZEPINE
  23. OMEGA-3 ACIDS [Concomitant]
     Active Substance: OMEGA-3 FATTY ACIDS
  24. RIFAXIMIN [Concomitant]
     Active Substance: RIFAXIMIN
  25. Mist [Concomitant]
  26. DIPHENHYDRAMINE HYDROCHLORIDE [Concomitant]
     Active Substance: DIPHENHYDRAMINE HYDROCHLORIDE
  27. FLUDROCORTISONE ACETATE [Concomitant]
     Active Substance: FLUDROCORTISONE ACETATE
  28. Echinacea goldenseal [Concomitant]
  29. VITAMIN D3 [Concomitant]
     Active Substance: CHOLECALCIFEROL
  30. PRILOSEC [Concomitant]
     Active Substance: OMEPRAZOLE MAGNESIUM
  31. VITAMIN C [Concomitant]
     Active Substance: ASCORBIC ACID
  32. MIRTAZAPINE [Concomitant]
     Active Substance: MIRTAZAPINE
  33. DIPHENHYDRAMINE [Concomitant]
     Active Substance: DIPHENHYDRAMINE
  34. VITAMIN E [Concomitant]
     Active Substance: .ALPHA.-TOCOPHEROL

REACTIONS (20)
  - Pneumonia [Unknown]
  - Brain injury [Unknown]
  - Aplasia pure red cell [Unknown]
  - Medical device site necrosis [Unknown]
  - Leukaemia [Unknown]
  - Hepatitis [Unknown]
  - Pulmonary embolism [Unknown]
  - Herpes virus infection [Unknown]
  - Gluten sensitivity [Unknown]
  - Paranasal sinus discomfort [Unknown]
  - Nasal inflammation [Unknown]
  - Infusion site discharge [Unknown]
  - Candida infection [Unknown]
  - Infection [Unknown]
  - Inappropriate schedule of product administration [Unknown]
  - Sinusitis [Unknown]
  - Abdominal discomfort [Unknown]
  - Infusion site bruising [Unknown]
  - Injection site pain [Unknown]
  - Pain [Unknown]

NARRATIVE: CASE EVENT DATE: 20230314
